FAERS Safety Report 21570218 (Version 4)
Quarter: 2023Q1

REPORT INFORMATION
  Report Type: Report from Study
  Country: US (occurrence: US)
  Receive Date: 20221109
  Receipt Date: 20230117
  Transmission Date: 20230417
  Serious: Yes (Other)
  Sender: FDA-Public Use
  Company Number: US-ABBVIE-4192387

PATIENT
  Age: 78 Year
  Sex: Male
  Weight: 78.02 kg

DRUGS (2)
  1. DUOPA [Suspect]
     Active Substance: CARBIDOPA\LEVODOPA
     Indication: Product used for unknown indication
     Route: 050
     Dates: start: 20190523
  2. DUOPA [Suspect]
     Active Substance: CARBIDOPA\LEVODOPA

REACTIONS (7)
  - Loss of consciousness [Not Recovered/Not Resolved]
  - Hypophagia [Not Recovered/Not Resolved]
  - Orthostatic hypotension [Unknown]
  - Unintentional medical device removal [Not Recovered/Not Resolved]
  - Weight decreased [Not Recovered/Not Resolved]
  - Fluid intake reduced [Not Recovered/Not Resolved]
  - Parkinson^s disease [Unknown]

NARRATIVE: CASE EVENT DATE: 20221029
